FAERS Safety Report 5350609-6 (Version None)
Quarter: 2007Q2

REPORT INFORMATION
  Report Type: 
  Country: None (occurrence: None)
  Receive Date: 20070608
  Receipt Date: 20070531
  Transmission Date: 20071010
  Serious: Yes (Other)
  Sender: FDA-Public Use
  Company Number: US-ASTRAZENECA-2006UW08023

PATIENT
  Sex: Female
  Weight: 48.6 kg

DRUGS (4)
  1. SEROQUEL [Suspect]
     Indication: SCHIZOPHRENIA
     Dosage: 200-300MG
     Route: 048
     Dates: start: 19990101
  2. SEROQUEL [Suspect]
     Indication: INSOMNIA
     Dosage: 200-300MG
     Route: 048
     Dates: start: 19990101
  3. SEROQUEL [Suspect]
     Indication: DEPRESSION
     Dosage: 200-300MG
     Route: 048
     Dates: start: 19990101
  4. ATIVAN [Concomitant]

REACTIONS (1)
  - PANCREATITIS [None]
